FAERS Safety Report 13902285 (Version 5)
Quarter: 2018Q2

REPORT INFORMATION
  Report Type: Report from Study
  Country: None (occurrence: CA)
  Receive Date: 20170824
  Receipt Date: 20180522
  Transmission Date: 20180711
  Serious: Yes (Hospitalization)
  Sender: FDA-Public Use
  Company Number: CA-ABBVIE-17K-028-2057600-00

PATIENT
  Age: 42 Year
  Sex: Female

DRUGS (2)
  1. HUMIRA [Suspect]
     Active Substance: ADALIMUMAB
     Indication: CROHN^S DISEASE
     Route: 058
     Dates: start: 20111028, end: 2017
  2. HUMIRA [Suspect]
     Active Substance: ADALIMUMAB
     Route: 058
     Dates: start: 2017

REACTIONS (37)
  - Weight decreased [Unknown]
  - Gastrointestinal wall thickening [Unknown]
  - Anal abscess [Unknown]
  - Anal fissure [Unknown]
  - Pollakiuria [Unknown]
  - Rectal haemorrhage [Unknown]
  - Flatulence [Unknown]
  - Swelling [Recovering/Resolving]
  - Vaginal abscess [Unknown]
  - Vaginal fistula [Unknown]
  - Anal inflammation [Unknown]
  - Drug specific antibody [Unknown]
  - Arthralgia [Unknown]
  - Fistula discharge [Unknown]
  - Vaginal fistula [Unknown]
  - Colitis [Unknown]
  - Vaginal discharge [Unknown]
  - Wound secretion [Unknown]
  - Inflammation [Unknown]
  - Haemorrhoids [Unknown]
  - Anorectal disorder [Unknown]
  - Skin discolouration [Unknown]
  - Sciatica [Unknown]
  - Fistula discharge [Recovering/Resolving]
  - Hospitalisation [Unknown]
  - Wound [Unknown]
  - Abdominal pain [Unknown]
  - Pain [Unknown]
  - Fatigue [Unknown]
  - Flatulence [Unknown]
  - Emotional distress [Unknown]
  - Wound complication [Unknown]
  - Anal fistula [Recovering/Resolving]
  - Anal fistula [Unknown]
  - Rectal abscess [Unknown]
  - Gastrointestinal motility disorder [Unknown]
  - Flatulence [Unknown]

NARRATIVE: CASE EVENT DATE: 201607
